FAERS Safety Report 20767092 (Version 1)
Quarter: 2022Q2

REPORT INFORMATION
  Report Type: Report from Study
  Country: US (occurrence: US)
  Receive Date: 20220429
  Receipt Date: 20220429
  Transmission Date: 20220721
  Serious: Yes (Other)
  Sender: FDA-Public Use
  Company Number: US-NOVARTISPH-NVSC2022US095376

PATIENT
  Sex: Male

DRUGS (1)
  1. ENTRESTO [Suspect]
     Active Substance: SACUBITRIL\VALSARTAN
     Indication: Product used for unknown indication
     Dosage: UNK
     Route: 065

REACTIONS (8)
  - Pneumonia [Unknown]
  - Thrombosis [Unknown]
  - Hypoacusis [Unknown]
  - Chronic obstructive pulmonary disease [Unknown]
  - Back injury [Unknown]
  - Limb injury [Unknown]
  - Fall [Unknown]
  - Rash [Unknown]
